FAERS Safety Report 14800951 (Version 1)
Quarter: 2018Q2

REPORT INFORMATION
  Report Type: Spontaneous
  Country: IT (occurrence: IT)
  Receive Date: 20180424
  Receipt Date: 20180424
  Transmission Date: 20180711
  Serious: Yes (Disabling)
  Sender: FDA-Public Use
  Company Number: IT-ROCHE-2113097

PATIENT
  Age: 81 Year
  Sex: Female

DRUGS (4)
  1. TORVAST [Concomitant]
     Active Substance: ATORVASTATIN
     Dosage: 20 MG COMPRESSE MASTICABILI
     Route: 048
  2. DIBASE [Concomitant]
     Active Substance: CHOLECALCIFEROL
     Indication: OSTEOPOROSIS
     Dosage: 25.000 U.I./2,5 ML SOLUZIONE ORALE
     Route: 048
  3. CODAMOL (ITALY) [Concomitant]
     Dosage: 500 MG + 30 MG COMPRESSE EFFERVESCENTI
     Route: 048
  4. BONVIVA [Suspect]
     Active Substance: IBANDRONATE SODIUM
     Indication: OSTEOPOROSIS
     Dosage: FILM COATED TABLET
     Route: 048
     Dates: start: 20071102, end: 20171002

REACTIONS (3)
  - Fistula [Not Recovered/Not Resolved]
  - Oral dysaesthesia [Not Recovered/Not Resolved]
  - Osteonecrosis of jaw [Not Recovered/Not Resolved]

NARRATIVE: CASE EVENT DATE: 20170501
